FAERS Safety Report 13590131 (Version 1)
Quarter: 2017Q2

REPORT INFORMATION
  Report Type: Spontaneous
  Country: US (occurrence: US)
  Receive Date: 20170529
  Receipt Date: 20170529
  Transmission Date: 20170830
  Serious: Yes (Other)
  Sender: FDA-Public Use
  Company Number: None

PATIENT
  Age: 46 Year
  Sex: Male
  Weight: 121.5 kg

DRUGS (1)
  1. BIOFREEZE [Suspect]
     Active Substance: MENTHOL
     Indication: MYALGIA
     Route: 061

REACTIONS (2)
  - Skin burning sensation [None]
  - Blister [None]

NARRATIVE: CASE EVENT DATE: 20170524
